FAERS Safety Report 12664998 (Version 1)
Quarter: 2016Q3

REPORT INFORMATION
  Report Type: Spontaneous
  Country: IE (occurrence: IE)
  Receive Date: 20160818
  Receipt Date: 20160818
  Transmission Date: 20161109
  Serious: Yes (Other)
  Sender: FDA-Public Use
  Company Number: IE-PFIZER INC-2016388483

PATIENT
  Age: 13 Year
  Sex: Male

DRUGS (5)
  1. IBUPROFEN. [Suspect]
     Active Substance: IBUPROFEN
     Indication: ANALGESIC THERAPY
     Dosage: 2 TABLETS
     Route: 048
  2. SALBUTAMOL [Concomitant]
     Active Substance: ALBUTEROL
     Indication: ASTHMA
     Dosage: 100 UG (TWO PUFF WHEN NEEDED)
     Route: 055
  3. CETIRIZINE [Concomitant]
     Active Substance: CETIRIZINE HYDROCHLORIDE
     Indication: ANTIALLERGIC THERAPY
     Dosage: 10 MG (RARELY)
     Route: 048
  4. LIGNOSPAN SPECIAL [Concomitant]
     Active Substance: EPINEPHRINE BITARTRATE\LIDOCAINE HYDROCHLORIDE
     Indication: DENTAL CARE
     Dosage: UNK (20 MG LIDOCAINE HYDROCHLORIDE/12.5 UG ADRENALINE PER ML)
  5. BECLOMETHASONE [Concomitant]
     Active Substance: BECLOMETHASONE
     Indication: ASTHMA
     Dosage: 100 UG, DAILY (TWO PUFF)
     Route: 055

REACTIONS (2)
  - Aspirin-exacerbated respiratory disease [Recovered/Resolved]
  - Hypersensitivity [Recovered/Resolved]
